FAERS Safety Report 8212783-3 (Version None)
Quarter: 2012Q1

REPORT INFORMATION
  Report Type: 
  Country: None (occurrence: None)
  Receive Date: 20120315
  Receipt Date: 20120307
  Transmission Date: 20120608
  Serious: Yes (Other)
  Sender: FDA-Public Use
  Company Number: US-JNJFOC-20120303723

PATIENT
  Sex: Male
  Weight: 61.24 kg

DRUGS (3)
  1. SIMPONI [Suspect]
     Route: 058
     Dates: start: 20110101, end: 20111201
  2. ENTOCORT EC [Concomitant]
     Indication: COLITIS
     Route: 048
     Dates: start: 20100101
  3. SIMPONI [Suspect]
     Indication: PSORIATIC ARTHROPATHY
     Route: 058
     Dates: start: 20120201

REACTIONS (3)
  - THERAPEUTIC RESPONSE DECREASED [None]
  - ARTHRITIS [None]
  - ABNORMAL LOSS OF WEIGHT [None]
